FAERS Safety Report 7851846-9 (Version None)
Quarter: 2011Q4

REPORT INFORMATION
  Report Type: 
  Country: None (occurrence: None)
  Receive Date: 20111026
  Receipt Date: 20111020
  Transmission Date: 20120403
  Serious: Yes (Other)
  Sender: FDA-Public Use
  Company Number: CA-ROCHE-1005953

PATIENT
  Sex: Male

DRUGS (1)
  1. ACCUTANE [Suspect]
     Indication: ACNE
     Route: 048
     Dates: start: 20110601, end: 20111004

REACTIONS (3)
  - KERATOCONUS [None]
  - DRY EYE [None]
  - BLOOD BILIRUBIN ABNORMAL [None]
